FAERS Safety Report 9380080 (Version 1)
Quarter: 2013Q2

REPORT INFORMATION
  Report Type: Spontaneous
  Country: GB (occurrence: None)
  Receive Date: 20130628
  Receipt Date: 20130628
  Transmission Date: 20140414
  Serious: Yes (Death, Other)
  Sender: FDA-Public Use
  Company Number: 2013P1010089

PATIENT
  Age: 12 Day
  Sex: Male

DRUGS (1)
  1. DIAZEPAM [Suspect]

REACTIONS (1)
  - Death [None]
